FAERS Safety Report 25962953 (Version 1)
Quarter: 2025Q4

REPORT INFORMATION
  Report Type: Spontaneous
  Country: US (occurrence: None)
  Receive Date: 20251026
  Receipt Date: 20251026
  Transmission Date: 20260117
  Serious: No
  Sender: FDA-CTU
  Company Number: None

PATIENT
  Age: 64 Year
  Sex: Female
  Weight: 107.1 kg

DRUGS (21)
  1. EZETIMIBE [Suspect]
     Active Substance: EZETIMIBE
     Indication: Blood cholesterol increased
     Dosage: OTHER QUANTITY : 1 TABLET(S);?FREQUENCY : DAILY;?
     Route: 048
  2. POTASSIUM [Concomitant]
     Active Substance: POTASSIUM
  3. TRINTELLIX [Concomitant]
     Active Substance: VORTIOXETINE HYDROBROMIDE
  4. XANAX [Concomitant]
     Active Substance: ALPRAZOLAM
  5. BENICAR [Concomitant]
     Active Substance: OLMESARTAN MEDOXOMIL
  6. LASIX [Concomitant]
     Active Substance: FUROSEMIDE
  7. PROTONIX [Concomitant]
     Active Substance: PANTOPRAZOLE SODIUM
  8. SYNTHROID [Concomitant]
     Active Substance: LEVOTHYROXINE SODIUM
  9. ADVAIR HFA [Concomitant]
     Active Substance: FLUTICASONE PROPIONATE\SALMETEROL XINAFOATE
  10. SPIRIVA [Concomitant]
     Active Substance: TIOTROPIUM BROMIDE MONOHYDRATE
  11. SINGULAIR [Concomitant]
     Active Substance: MONTELUKAST SODIUM
  12. ROBAXIN [Concomitant]
     Active Substance: METHOCARBAMOL
  13. VASCEPA [Concomitant]
     Active Substance: ICOSAPENT ETHYL
  14. PROTONIX [Concomitant]
     Active Substance: PANTOPRAZOLE SODIUM
  15. DOXYCYCLINE [Concomitant]
     Active Substance: DOXYCYCLINE
  16. LOW DOSE ASPIRIN [Concomitant]
     Active Substance: ASPIRIN
  17. VITAMIN D [Concomitant]
     Active Substance: VITAMIN D NOS
  18. ACETAMINOPHEN [Concomitant]
     Active Substance: ACETAMINOPHEN
  19. B12 [Concomitant]
  20. ZINC [Concomitant]
     Active Substance: ZINC
  21. VITAMIN C [Concomitant]
     Active Substance: ASCORBIC ACID

REACTIONS (8)
  - Fatigue [None]
  - Alopecia [None]
  - Flatulence [None]
  - Abdominal distension [None]
  - Diarrhoea [None]
  - Chills [None]
  - Muscle spasms [None]
  - Muscle spasms [None]

NARRATIVE: CASE EVENT DATE: 20251014
